FAERS Safety Report 20286270 (Version 1)
Quarter: 2022Q1

REPORT INFORMATION
  Report Type: Spontaneous
  Country: US (occurrence: US)
  Receive Date: 20220103
  Receipt Date: 20220103
  Transmission Date: 20220423
  Serious: No
  Sender: FDA-Public Use
  Company Number: US-AMGEN-USASP2021206164

PATIENT
  Sex: Male

DRUGS (12)
  1. REPATHA [Suspect]
     Active Substance: EVOLOCUMAB
     Indication: Type IIa hyperlipidaemia
     Dosage: 140 MILLIGRAM, Q2WK
     Route: 058
  2. PROZAC [Concomitant]
     Active Substance: FLUOXETINE HYDROCHLORIDE
  3. SERTRALINE [Concomitant]
     Active Substance: SERTRALINE HYDROCHLORIDE
  4. GABAPENTIN [Concomitant]
     Active Substance: GABAPENTIN
     Dosage: 300 MILLIGRAM, UNK
  5. IBUPROFEN [Concomitant]
     Active Substance: IBUPROFEN
     Dosage: 800 MILLIGRAM, UNK
  6. ASPIRIN [Concomitant]
     Active Substance: ASPIRIN
     Dosage: 81 MILLIGRAM, UNK
  7. CARVEDILOL [Concomitant]
     Active Substance: CARVEDILOL
     Dosage: 12.5 MILLIGRAM, UNK
  8. LORAZEPAM [Concomitant]
     Active Substance: LORAZEPAM
     Dosage: 1 MILLIGRAM, UNK
  9. LOSARTAN [Concomitant]
     Active Substance: LOSARTAN
     Dosage: 50 MILLIGRAM, UNK
  10. METHOCARBAMOL [Concomitant]
     Active Substance: METHOCARBAMOL
     Dosage: 750 MILLIGRAM, UNK
  11. TRAMADOL [Concomitant]
     Active Substance: TRAMADOL
     Dosage: 50 MILLIGRAM, UNK
  12. ZETIA [Concomitant]
     Active Substance: EZETIMIBE
     Dosage: 10 MILLIGRAM, UNK

REACTIONS (2)
  - Injection site pain [Not Recovered/Not Resolved]
  - Injection site swelling [Not Recovered/Not Resolved]
